FAERS Safety Report 5348835-5 (Version None)
Quarter: 2007Q2

REPORT INFORMATION
  Report Type: 
  Country: None (occurrence: None)
  Receive Date: 20070605
  Receipt Date: 20070529
  Transmission Date: 20071010
  Serious: Yes (Other)
  Sender: FDA-Public Use
  Company Number: B0473340A

PATIENT
  Age: 27 Year
  Sex: Female

DRUGS (1)
  1. LITHIUM CARBONATE [Suspect]
     Indication: BIPOLAR I DISORDER
     Dosage: SEE DOSAGE TEXT / ORAL
     Route: 048

REACTIONS (4)
  - DIARRHOEA [None]
  - HAEMODIALYSIS [None]
  - NAUSEA [None]
  - THERAPEUTIC AGENT TOXICITY [None]
